FAERS Safety Report 17075533 (Version 8)
Quarter: 2020Q4

REPORT INFORMATION
  Report Type: Spontaneous
  Country: US (occurrence: US)
  Receive Date: 20191126
  Receipt Date: 20201222
  Transmission Date: 20210113
  Serious: No
  Sender: FDA-Public Use
  Company Number: US-PFIZER INC-2018182949

PATIENT
  Age: 45 Year
  Sex: Female
  Weight: 66 kg

DRUGS (4)
  1. XELJANZ [Suspect]
     Active Substance: TOFACITINIB CITRATE
     Indication: ALOPECIA TOTALIS
  2. XELJANZ [Suspect]
     Active Substance: TOFACITINIB CITRATE
     Indication: ALOPECIA UNIVERSALIS
     Dosage: 5 MG, 2X/DAY
     Dates: start: 20181101
  3. XELJANZ [Suspect]
     Active Substance: TOFACITINIB CITRATE
     Indication: ALOPECIA
  4. XELJANZ [Suspect]
     Active Substance: TOFACITINIB CITRATE
     Indication: ALOPECIA AREATA
     Dosage: 5 MG, 2X/DAY
     Route: 048
     Dates: start: 20191101

REACTIONS (13)
  - Product use in unapproved indication [Unknown]
  - Blood cholesterol increased [Unknown]
  - Off label use [Unknown]
  - Headache [Unknown]
  - Bowel movement irregularity [Not Recovered/Not Resolved]
  - Upper respiratory tract infection [Unknown]
  - Blood count abnormal [Unknown]
  - Therapeutic response unexpected [Unknown]
  - Low density lipoprotein increased [Unknown]
  - Drug effective for unapproved indication [Unknown]
  - Frequent bowel movements [Unknown]
  - Weight increased [Unknown]
  - High density lipoprotein decreased [Unknown]

NARRATIVE: CASE EVENT DATE: 2018
